FAERS Safety Report 4432010-2 (Version None)
Quarter: 2004Q3

REPORT INFORMATION
  Report Type: 
  Country: None (occurrence: None)
  Receive Date: 20040819
  Receipt Date: 20040805
  Transmission Date: 20050211
  Serious: Yes (Death, Congenital Anomaly)
  Sender: FDA-Public Use
  Company Number: 2004-BP-02660BP

PATIENT
  Age: 2 Day
  Sex: Female

DRUGS (3)
  1. VIRAMUNE [Suspect]
     Indication: HIV INFECTION
     Dosage: 400 MG, IU
     Route: 015
     Dates: start: 20040108
  2. COMBIVIR [Suspect]
     Indication: HIV INFECTION
     Dosage: 2, PO
     Route: 048
     Dates: start: 20040108
  3. RETROVIR [Suspect]
     Indication: HIV INFECTION
     Dosage: 2MG/KG, IV
     Route: 042
     Dates: start: 20040324

REACTIONS (12)
  - ANOTIA [None]
  - CLEFT LIP AND PALATE [None]
  - CONGENITAL CENTRAL NERVOUS SYSTEM ANOMALY [None]
  - CONGENITAL PULMONARY ARTERY ANOMALY [None]
  - DRUG EXPOSURE DURING PREGNANCY [None]
  - FOETAL GROWTH RETARDATION [None]
  - GENITALIA EXTERNAL AMBIGUOUS [None]
  - PATENT DUCTUS ARTERIOSUS [None]
  - PREMATURE BABY [None]
  - PULMONARY HYPERTENSION [None]
  - RECTAL ATRESIA [None]
  - TRISOMY 8 [None]
